FAERS Safety Report 25995698 (Version 1)
Quarter: 2025Q4

REPORT INFORMATION
  Report Type: Report from Study
  Country: CA (occurrence: CA)
  Receive Date: 20251104
  Receipt Date: 20251104
  Transmission Date: 20260118
  Serious: Yes (Other)
  Sender: TAKEDA
  Company Number: CA-TAKEDA-2025TUS095998

PATIENT
  Age: 20 Year
  Sex: Female

DRUGS (2)
  1. VEDOLIZUMAB [Suspect]
     Active Substance: VEDOLIZUMAB
     Indication: Colitis ulcerative
     Dosage: 300 MILLIGRAM
  2. VEDOLIZUMAB [Suspect]
     Active Substance: VEDOLIZUMAB
     Dosage: 300 MILLIGRAM, Q4WEEKS
     Dates: start: 20200403

REACTIONS (6)
  - Pelvic inflammatory disease [Recovering/Resolving]
  - Pharyngitis streptococcal [Recovering/Resolving]
  - Breast mass [Not Recovered/Not Resolved]
  - Chlamydial infection [Recovering/Resolving]
  - Bacterial vaginosis [Recovering/Resolving]
  - Headache [Not Recovered/Not Resolved]
